FAERS Safety Report 9098690 (Version 6)
Quarter: 2014Q4

REPORT INFORMATION
  Report Type: Spontaneous
  Country: US (occurrence: US)
  Receive Date: 20130213
  Receipt Date: 20141117
  Transmission Date: 20150529
  Serious: Yes (Hospitalization, Other)
  Sender: FDA-Public Use
  Company Number: US-009507513-1302USA005602

PATIENT
  Sex: Female
  Weight: 49.43 kg

DRUGS (6)
  1. FOSAMAX [Suspect]
     Active Substance: ALENDRONATE SODIUM
     Dosage: 70 MG, QW
     Route: 048
  2. VITAMINS (UNSPECIFIED) [Concomitant]
     Active Substance: VITAMINS
     Dosage: 1 DF, UNK
     Dates: start: 1993
  3. FOSAMAX PLUS D [Suspect]
     Active Substance: ALENDRONATE SODIUM\CHOLECALCIFEROL
     Indication: OSTEOPOROSIS
     Dosage: 70/2800 MG, QW
     Route: 048
     Dates: end: 20080618
  4. ALENDRONATE SODIUM. [Suspect]
     Active Substance: ALENDRONATE SODIUM
     Indication: OSTEOPOROSIS
     Dosage: 70 MG, QW
     Route: 048
     Dates: start: 20080618, end: 20101001
  5. FOSAMAX PLUS D [Suspect]
     Active Substance: ALENDRONATE SODIUM\CHOLECALCIFEROL
     Indication: OSTEOPENIA
  6. ALENDRONATE SODIUM. [Suspect]
     Active Substance: ALENDRONATE SODIUM
     Indication: OSTEOPENIA

REACTIONS (10)
  - Hypercholesterolaemia [Not Recovered/Not Resolved]
  - Spinal osteoarthritis [Unknown]
  - Haemorrhagic anaemia [Unknown]
  - Hernia repair [Unknown]
  - Hypocalcaemia [Unknown]
  - Hyperglycaemia [Recovered/Resolved]
  - Malnutrition [Unknown]
  - Femur fracture [Recovered/Resolved]
  - Open reduction of fracture [Unknown]
  - Fall [Unknown]

NARRATIVE: CASE EVENT DATE: 200110
